FAERS Safety Report 7079289-9 (Version None)
Quarter: 2010Q4

REPORT INFORMATION
  Report Type: 
  Country: None (occurrence: None)
  Receive Date: 20101022
  Receipt Date: 20101019
  Transmission Date: 20110411
  Serious: Yes (Hospitalization)
  Sender: FDA-Public Use
  Company Number: 2010SP054891

PATIENT
  Age: 60 Year
  Sex: Male

DRUGS (4)
  1. RIBAVIRIN [Suspect]
     Indication: HEPATITIS C
  2. PEG INTERFERON (INTERFERONS) [Suspect]
     Indication: HEPATITIS C
  3. PEGASYS [Suspect]
     Indication: HEPATITIS C
  4. COPEGUS [Suspect]
     Indication: HEPATITIS C

REACTIONS (1)
  - LYMPH NODE TUBERCULOSIS [None]
